FAERS Safety Report 5501393-4 (Version None)
Quarter: 2007Q4

REPORT INFORMATION
  Report Type: 
  Country: None (occurrence: None)
  Receive Date: 20071026
  Receipt Date: 20071011
  Transmission Date: 20080405
  Serious: Yes (Hospitalization, Other)
  Sender: FDA-Public Use
  Company Number: 2007S1009950

PATIENT
  Age: 33 Year
  Sex: Female
  Weight: 75 kg

DRUGS (5)
  1. DURAZANIL (BROMAZEPAM) [Suspect]
     Indication: DRUG USE FOR UNKNOWN INDICATION
     Dosage: 6 MG; 4 TIMES A DAY;ORAL
     Route: 048
     Dates: start: 20071010
  2. ZOPICLODURA (ZOPICLONE) [Suspect]
     Indication: DRUG USE FOR UNKNOWN INDICATION
     Dosage: 7.5 MG; 20_1_DAY; ORAL
     Route: 048
     Dates: start: 20071010
  3. ALCOHOL /00002101/ (ETHANOL) [Suspect]
     Indication: DRUG USE FOR UNKNOWN INDICATION
     Dosage: ORAL
     Route: 048
     Dates: start: 20071010
  4. DIAZEPAM [Suspect]
     Indication: DRUG USE FOR UNKNOWN INDICATION
     Dosage: ORAL
     Route: 048
     Dates: start: 20071010
  5. LORMETAZEPAM (LORMETAZEPAM) [Suspect]
     Indication: DRUG USE FOR UNKNOWN INDICATION
     Dosage: ORAL
     Route: 048
     Dates: start: 20071010

REACTIONS (4)
  - ALCOHOL USE [None]
  - MULTIPLE DRUG OVERDOSE INTENTIONAL [None]
  - NO ADVERSE EVENT [None]
  - SUICIDE ATTEMPT [None]
